FAERS Safety Report 19590215 (Version 11)
Quarter: 2022Q3

REPORT INFORMATION
  Report Type: Report from Study
  Country: DE (occurrence: DE)
  Receive Date: 20210721
  Receipt Date: 20220927
  Transmission Date: 20221027
  Serious: Yes (Hospitalization, Other)
  Sender: FDA-Public Use
  Company Number: DE-002147023-NVSC2020DE250178

PATIENT
  Sex: Female
  Weight: 58 kg

DRUGS (8)
  1. LETROZOLE [Suspect]
     Active Substance: LETROZOLE
     Indication: Breast cancer metastatic
     Dosage: 2.5 MILLIGRAM, QD (2.5 MG, QD  (DAILY)
     Route: 048
     Dates: start: 20200414
  2. KISQALI [Suspect]
     Active Substance: RIBOCICLIB
     Indication: Breast cancer metastatic
     Dosage: 600 MG, QD SCHEMA 21 DAYS INTAKE, 7 DAYS PAUSE
     Route: 048
     Dates: start: 20200414, end: 20210107
  3. KISQALI [Suspect]
     Active Substance: RIBOCICLIB
     Dosage: 200 MILLIGRAM, QD (200 MG, QD (DAILY)
     Route: 048
     Dates: start: 20210109
  4. KISQALI [Suspect]
     Active Substance: RIBOCICLIB
     Dosage: 400 MG QD, (SCHEMA 21 DAYS INTAKE, 7 DAYS PAUSE)
     Route: 048
     Dates: start: 20210109, end: 20210318
  5. KISQALI [Suspect]
     Active Substance: RIBOCICLIB
     Dosage: 200 MG QD, (SCHEMA 21 DAYS INTAKE, 7 DAYS PAUSE)
     Route: 048
     Dates: start: 20210518, end: 20210705
  6. KISQALI [Suspect]
     Active Substance: RIBOCICLIB
     Dosage: UNK
     Route: 048
  7. CITALOPRAM [Concomitant]
     Active Substance: CITALOPRAM HYDROBROMIDE
     Indication: Depression
     Dosage: UNK, (0.5)
     Route: 048
     Dates: start: 2019
  8. NORSPAN [Concomitant]
     Active Substance: BUPRENORPHINE
     Indication: Pain
     Dosage: UNK, (ALTERNATING WEEKLY)
     Route: 062
     Dates: start: 2019

REACTIONS (14)
  - Anaemia [Recovering/Resolving]
  - General physical health deterioration [Recovered/Resolved]
  - Renal failure [Recovering/Resolving]
  - Glomerular filtration rate decreased [Unknown]
  - Laboratory test abnormal [Recovered/Resolved]
  - Blood creatinine increased [Recovering/Resolving]
  - Renal impairment [Recovering/Resolving]
  - Blood potassium decreased [Unknown]
  - Back pain [Not Recovered/Not Resolved]
  - Decreased appetite [Not Recovered/Not Resolved]
  - Haemoglobin decreased [Unknown]
  - Monocyte count increased [Unknown]
  - Weight decreased [Unknown]
  - Bone pain [Unknown]

NARRATIVE: CASE EVENT DATE: 20200901
